FAERS Safety Report 6895427-2 (Version None)
Quarter: 2010Q3

REPORT INFORMATION
  Report Type: 
  Country: None (occurrence: None)
  Receive Date: 20100730
  Receipt Date: 20100730
  Transmission Date: 20110219
  Serious: Yes (Other)
  Sender: FDA-Public Use
  Company Number: None

PATIENT
  Age: 50 Year
  Sex: Female
  Weight: 66.4 kg

DRUGS (1)
  1. CIPRO [Suspect]
     Indication: KIDNEY INFECTION
     Dosage: 500 MG. 2X/DAY ORALLY WITH WATER
     Dates: start: 20100711, end: 20100714

REACTIONS (5)
  - ARTHRALGIA [None]
  - DIZZINESS [None]
  - MOVEMENT DISORDER [None]
  - PARAESTHESIA [None]
  - RASH [None]
